FAERS Safety Report 4280277-6 (Version None)
Quarter: 2004Q1

REPORT INFORMATION
  Report Type: 
  Country: None (occurrence: None)
  Receive Date: 20040126
  Receipt Date: 20040111
  Transmission Date: 20041129
  Serious: Yes (Hospitalization)
  Sender: FDA-Public Use
  Company Number: 2004001608

PATIENT
  Age: 60 Year

DRUGS (2)
  1. VIAGRA [Suspect]
     Indication: ILL-DEFINED DISORDER
  2. LORAZEPAM [Suspect]
     Indication: ANXIETY

REACTIONS (1)
  - HOSPITALISATION [None]
